FAERS Safety Report 5423695-2 (Version None)
Quarter: 2007Q3

REPORT INFORMATION
  Report Type: 
  Country: None (occurrence: None)
  Receive Date: 20070823
  Receipt Date: 20070817
  Transmission Date: 20080115
  Serious: Yes (Congenital Anomaly)
  Sender: FDA-Public Use
  Company Number: B0484293A

PATIENT
  Age: 23 Year
  Sex: Female

DRUGS (4)
  1. IMUREK [Suspect]
     Indication: MYASTHENIA GRAVIS
     Dosage: 175MG PER DAY
     Route: 048
  2. PREDNISOLONE [Suspect]
     Indication: MYASTHENIA GRAVIS
     Dosage: 15MG PER DAY
     Route: 048
  3. ACTONEL [Suspect]
     Indication: DRUG USE FOR UNKNOWN INDICATION
     Dosage: 35MG WEEKLY
     Route: 048
     Dates: start: 20061124
  4. PAROXETINE [Suspect]
     Indication: DRUG USE FOR UNKNOWN INDICATION
     Dosage: 20MG PER DAY
     Route: 048
     Dates: start: 20061126

REACTIONS (2)
  - CONGENITAL GENITOURINARY ABNORMALITY [None]
  - DRUG EXPOSURE DURING PREGNANCY [None]
